FAERS Safety Report 6062330-X (Version None)
Quarter: 2009Q1

REPORT INFORMATION
  Report Type: 
  Country: None (occurrence: None)
  Receive Date: 20090203
  Receipt Date: 20090129
  Transmission Date: 20090719
  Serious: Yes (Death, Other)
  Sender: FDA-Public Use
  Company Number: PHHY2009CA02508

PATIENT
  Sex: Male

DRUGS (16)
  1. CLOZARIL [Suspect]
     Indication: PSYCHOTIC DISORDER
     Dosage: 200 MG, BID
     Route: 048
     Dates: start: 20061012, end: 20090112
  2. NASONEX [Concomitant]
  3. SALBUTAMOL [Concomitant]
  4. NOVOLIN [Concomitant]
  5. NOVORAPID [Concomitant]
  6. NEXIUM [Concomitant]
     Route: 060
  7. DILTIAZEM [Concomitant]
  8. ATIVAN [Concomitant]
  9. METFORMIN [Concomitant]
  10. BISOPROLOL [Concomitant]
  11. SINGULAIR [Concomitant]
  12. APO-HYDRO [Concomitant]
  13. ALTACE [Concomitant]
  14. ASPIRIN [Concomitant]
  15. LIPITOR [Concomitant]
  16. ADVAIR DISKUS 100/50 [Concomitant]

REACTIONS (7)
  - AGITATION [None]
  - BLOOD GLUCOSE INCREASED [None]
  - CARDIO-RESPIRATORY ARREST [None]
  - CONFUSIONAL STATE [None]
  - DEATH [None]
  - FAECES DISCOLOURED [None]
  - RESUSCITATION [None]
